FAERS Safety Report 12479764 (Version 8)
Quarter: 2016Q3

REPORT INFORMATION
  Report Type: Spontaneous
  Country: US (occurrence: US)
  Receive Date: 20160620
  Receipt Date: 20160905
  Transmission Date: 20161109
  Serious: Yes (Hospitalization, Other)
  Sender: FDA-Public Use
  Company Number: US-PFIZER INC-2016285752

PATIENT
  Age: 79 Year
  Sex: Female
  Weight: 88 kg

DRUGS (16)
  1. METOPROLOL. [Concomitant]
     Active Substance: METOPROLOL
     Dosage: UNK
  2. VITAMIN B [Concomitant]
     Active Substance: VITAMIN B
     Dosage: UNK
  3. LIPITOR [Concomitant]
     Active Substance: ATORVASTATIN CALCIUM
     Dosage: UNK
  4. FLONASE [Concomitant]
     Active Substance: FLUTICASONE PROPIONATE
     Dosage: UNK
     Dates: start: 20160616
  5. SUTENT [Suspect]
     Active Substance: SUNITINIB MALATE
     Dosage: 37.5 MG, (2 WEEKS ON/1 WEEK OFF)
     Dates: start: 20160711, end: 20160713
  6. CALCIUM [Concomitant]
     Active Substance: CALCIUM
     Dosage: UNK
  7. POTASSIUM [Concomitant]
     Active Substance: POTASSIUM
     Dosage: UNK
  8. HYDRALAZINE [Concomitant]
     Active Substance: HYDRALAZINE HYDROCHLORIDE
     Dosage: UNK
     Dates: start: 20160615
  9. PREVALITE [Concomitant]
     Active Substance: CHOLESTYRAMINE
     Indication: ABNORMAL FAECES
     Dosage: UNK, AS NEEDED
  10. SUTENT [Suspect]
     Active Substance: SUNITINIB MALATE
     Indication: METASTATIC RENAL CELL CARCINOMA
     Dosage: 50 MG, UNK (2 WEEKS ON/1 WEEK OFF)
     Dates: start: 20160519, end: 20160630
  11. VITAMIN D [Concomitant]
     Active Substance: CHOLECALCIFEROL
     Dosage: UNK
  12. VITAMIN C [Concomitant]
     Active Substance: ASCORBIC ACID
     Dosage: UNK
  13. SULFASALAZINE. [Concomitant]
     Active Substance: SULFASALAZINE
     Indication: CROHN^S DISEASE
     Dosage: UNK
  14. SINGULAIR [Concomitant]
     Active Substance: MONTELUKAST SODIUM
     Dosage: UNK
     Dates: start: 20160616
  15. SUTENT [Suspect]
     Active Substance: SUNITINIB MALATE
     Dosage: 37.5 MG, (2 WEEKS ON/1 WEEK OFF)
     Dates: start: 20160718, end: 20160807
  16. SUTENT [Suspect]
     Active Substance: SUNITINIB MALATE
     Dosage: 37.5 MG, (2 WEEKS ON/1 WEEK OFF)
     Dates: start: 20160817

REACTIONS (31)
  - Dysgeusia [Unknown]
  - Conjunctivitis [Unknown]
  - Peripheral swelling [Not Recovered/Not Resolved]
  - Arthralgia [Recovered/Resolved]
  - Malaise [Unknown]
  - Sleep disorder [Unknown]
  - Hypertension [Unknown]
  - Diarrhoea [Unknown]
  - Dyspepsia [Unknown]
  - Dry skin [Unknown]
  - Dry mouth [Unknown]
  - Memory impairment [Unknown]
  - Urinary tract infection [Unknown]
  - Blister [Unknown]
  - Decreased appetite [Unknown]
  - Eye discharge [Unknown]
  - Haemorrhoids [Unknown]
  - Pain in extremity [Recovered/Resolved]
  - Blood pressure decreased [Unknown]
  - Gastrointestinal haemorrhage [Unknown]
  - Pruritus [Unknown]
  - Weight decreased [Unknown]
  - Hypersensitivity [Unknown]
  - Ocular hyperaemia [Unknown]
  - Sinus disorder [Unknown]
  - Faeces soft [Recovering/Resolving]
  - Kidney infection [Unknown]
  - Fatigue [Not Recovered/Not Resolved]
  - Asthenia [Recovered/Resolved]
  - Constipation [Unknown]
  - Incontinence [Unknown]

NARRATIVE: CASE EVENT DATE: 20160705
